FAERS Safety Report 8958876 (Version 1)
Quarter: 2012Q4

REPORT INFORMATION
  Report Type: Report from Study
  Country: US (occurrence: US)
  Receive Date: 20121212
  Receipt Date: 20121212
  Transmission Date: 20130627
  Serious: Yes (Hospitalization)
  Sender: FDA-Public Use
  Company Number: US-ROCHE-1163792

PATIENT
  Sex: Male

DRUGS (1)
  1. VISMODEGIB [Suspect]
     Indication: PRODUCT USED FOR UNKNOWN INDICATION
     Route: 065

REACTIONS (3)
  - Motion sickness [Unknown]
  - Syncope [Unknown]
  - Blood magnesium decreased [Unknown]
